FAERS Safety Report 6153474-2 (Version None)
Quarter: 2009Q2

REPORT INFORMATION
  Report Type: 
  Country: None (occurrence: None)
  Receive Date: 20090409
  Receipt Date: 20090409
  Transmission Date: 20091009
  Serious: Yes (Life-Threatening, Hospitalization, Congenital Anomaly)
  Sender: FDA-Public Use
  Company Number: None

PATIENT
  Age: 68 Year
  Sex: Female
  Weight: 61.2356 kg

DRUGS (14)
  1. DIGOXIN [Suspect]
     Indication: ARRHYTHMIA
     Dosage: 0.25  1 DAILY
     Dates: start: 20050803, end: 20080529
  2. METOPROLOL TARTRATE [Concomitant]
  3. FERROUS SULFATE TAB [Concomitant]
  4. SERTRALINE HCL [Concomitant]
  5. NORTRIPTYLINE HCL [Concomitant]
  6. EVISTA [Concomitant]
  7. OMEPRAZOLE [Concomitant]
  8. LISINOPRIL [Concomitant]
  9. WARFARIN SODIUM [Concomitant]
  10. LANOXIN [Concomitant]
  11. NITROSTAT [Concomitant]
  12. FUROSEMIDE [Concomitant]
  13. CALCIUM [Concomitant]
  14. LYSINE [Concomitant]

REACTIONS (10)
  - CONFUSIONAL STATE [None]
  - DIZZINESS [None]
  - FALL [None]
  - HAEMOGLOBIN DECREASED [None]
  - HEART RATE ABNORMAL [None]
  - HYPOTENSION [None]
  - LOSS OF CONSCIOUSNESS [None]
  - NAUSEA [None]
  - PHOTOPSIA [None]
  - SWELLING [None]
